FAERS Safety Report 20100497 (Version 4)
Quarter: 2022Q1

REPORT INFORMATION
  Report Type: Report from Study
  Country: ES (occurrence: ES)
  Receive Date: 20211123
  Receipt Date: 20220114
  Transmission Date: 20220423
  Serious: Yes (Other)
  Sender: FDA-Public Use
  Company Number: ES-ABBVIE-21K-144-4127909-00

PATIENT
  Sex: Female

DRUGS (8)
  1. CARBIDOPA\LEVODOPA [Suspect]
     Active Substance: CARBIDOPA\LEVODOPA
     Indication: Parkinson^s disease
     Route: 050
     Dates: start: 20210722, end: 20211011
  2. CARBIDOPA\LEVODOPA [Suspect]
     Active Substance: CARBIDOPA\LEVODOPA
     Dosage: DOSE INCREASED
     Route: 050
     Dates: start: 20211011, end: 20211018
  3. CARBIDOPA\LEVODOPA [Suspect]
     Active Substance: CARBIDOPA\LEVODOPA
     Dosage: INCREASED CONTINUOUS DOSE BY 0.3 ML/H
     Route: 050
     Dates: start: 20211018, end: 20211027
  4. CARBIDOPA\LEVODOPA [Suspect]
     Active Substance: CARBIDOPA\LEVODOPA
     Dosage: LOWER THE CONTINUOUS RATE BY 0.2 ML / H
     Route: 050
     Dates: start: 20211027
  5. ROPINIROLE [Concomitant]
     Active Substance: ROPINIROLE
     Indication: Parkinson^s disease
     Route: 048
     Dates: end: 20211030
  6. ROPINIROLE [Concomitant]
     Active Substance: ROPINIROLE
     Route: 048
     Dates: start: 20211030
  7. ROTIGOTINE PATCH [Concomitant]
     Indication: Product used for unknown indication
     Dosage: AT NIGHT
     Route: 061
  8. SINEMET [Concomitant]
     Active Substance: CARBIDOPA\LEVODOPA
     Indication: Product used for unknown indication
     Dates: start: 202107

REACTIONS (12)
  - Intervertebral disc compression [Unknown]
  - Mixed anxiety and depressive disorder [Recovered/Resolved]
  - Foot deformity [Recovered/Resolved]
  - Limb discomfort [Recovered/Resolved]
  - Pain [Recovered/Resolved]
  - Parkinson^s disease [Recovering/Resolving]
  - Therapeutic product effect incomplete [Unknown]
  - Paraesthesia [Recovered/Resolved]
  - Muscle rigidity [Not Recovered/Not Resolved]
  - Dyskinesia [Recovered/Resolved]
  - Sleep disorder [Recovered/Resolved]
  - On and off phenomenon [Unknown]

NARRATIVE: CASE EVENT DATE: 20210101
